FAERS Safety Report 9856462 (Version 2)
Quarter: 2014Q1

REPORT INFORMATION
  Report Type: Spontaneous
  Country: US (occurrence: US)
  Receive Date: 20140130
  Receipt Date: 20140130
  Transmission Date: 20141002
  Serious: Yes (Other)
  Sender: FDA-Public Use
  Company Number: PHHY2013US153544

PATIENT
  Age: 46 Year
  Sex: Female

DRUGS (6)
  1. LIORESAL INTRATECAL [Suspect]
     Indication: PAIN
     Dosage: 1300 UG/DAY
     Route: 037
     Dates: start: 20100708
  2. LIORESAL INTRATECAL [Suspect]
     Dosage: 149.8 UG/DAY
     Route: 037
  3. TIZANIDINE [Suspect]
     Dosage: 4 MG, TID
     Route: 048
  4. AMITRIPTYLINE [Suspect]
     Dosage: 150 MG, DAILY
     Route: 048
  5. NALTREXONE [Suspect]
     Dosage: 3 MG, DAILY
     Route: 048
  6. NEURONTIN [Suspect]
     Dosage: 800 MG, QID
     Route: 048

REACTIONS (5)
  - Muscular weakness [Unknown]
  - Muscle spasms [Unknown]
  - Pain in extremity [Unknown]
  - Back pain [Unknown]
  - No therapeutic response [Recovered/Resolved]
